FAERS Safety Report 5878868-1 (Version None)
Quarter: 2008Q3

REPORT INFORMATION
  Report Type: 
  Country: None (occurrence: None)
  Receive Date: 20080912
  Receipt Date: 20080903
  Transmission Date: 20090109
  Serious: Yes (Death, Life-Threatening, Hospitalization)
  Sender: FDA-Public Use
  Company Number: GB-JNJFOC-20080405562

PATIENT
  Age: 81 Year
  Sex: Male

DRUGS (2)
  1. REMICADE [Suspect]
     Dosage: RESCUE INFUSION
     Route: 042
  2. REMICADE [Suspect]
     Indication: COLITIS ULCERATIVE
     Route: 042

REACTIONS (3)
  - BRONCHOPNEUMONIA [None]
  - COLITIS ULCERATIVE [None]
  - FEMORAL NECK FRACTURE [None]
